FAERS Safety Report 25057230 (Version 1)
Quarter: 2025Q1

REPORT INFORMATION
  Report Type: Report from Study
  Country: US (occurrence: US)
  Receive Date: 20250310
  Receipt Date: 20250310
  Transmission Date: 20250408
  Serious: Yes (Other)
  Sender: ABBVIE
  Company Number: US-ABBVIE-6166695

PATIENT
  Age: 60 Year
  Sex: Female

DRUGS (2)
  1. RINVOQ [Suspect]
     Active Substance: UPADACITINIB
     Indication: Colitis ulcerative
     Dosage: STRENGTH: 30MG
     Route: 048
     Dates: start: 20231011
  2. RINVOQ [Suspect]
     Active Substance: UPADACITINIB
     Indication: Colitis ulcerative
     Dosage: FOR 8 WEEKS?LAST ADMIN DATE 2023
     Route: 048
     Dates: start: 20230816

REACTIONS (1)
  - Malignant peritoneal neoplasm [Unknown]

NARRATIVE: CASE EVENT DATE: 20250201
